FAERS Safety Report 12975281 (Version 1)
Quarter: 2016Q4

REPORT INFORMATION
  Report Type: Spontaneous
  Country: US (occurrence: US)
  Receive Date: 20161124
  Receipt Date: 20161124
  Transmission Date: 20170207
  Serious: No
  Sender: FDA-Public Use
  Company Number: None

PATIENT
  Age: 35 Year
  Sex: Female
  Weight: 81 kg

DRUGS (3)
  1. LEVOTHYROXINE. [Concomitant]
     Active Substance: LEVOTHYROXINE
  2. CABERGOLINE. [Suspect]
     Active Substance: CABERGOLINE
     Indication: PROLACTIN-PRODUCING PITUITARY TUMOUR
     Dosage: ?          QUANTITY:0.5 TABLET(S);OTHER FREQUENCY:TWICE PER WEEK;?
     Route: 048
     Dates: start: 20151001, end: 20161101
  3. PREGNA VITE (PRENATAL VITAMINS) [Concomitant]

REACTIONS (6)
  - Social problem [None]
  - Partner stress [None]
  - Screaming [None]
  - Aggression [None]
  - Anger [None]
  - Maternal exposure timing unspecified [None]

NARRATIVE: CASE EVENT DATE: 20161010
